FAERS Safety Report 7402130-9 (Version None)
Quarter: 2011Q2

REPORT INFORMATION
  Report Type: 
  Country: None (occurrence: None)
  Receive Date: 20110408
  Receipt Date: 20110325
  Transmission Date: 20111010
  Serious: Yes (Other)
  Sender: FDA-Public Use
  Company Number: GB-JNJFOC-20100302946

PATIENT
  Sex: Female

DRUGS (2)
  1. GALANTAMINE HYDROBROMIDE [Suspect]
     Indication: ILL-DEFINED DISORDER
     Route: 065
  2. GALANTAMINE HYDROBROMIDE [Suspect]
     Route: 065

REACTIONS (6)
  - AGGRESSION [None]
  - SOCIAL AVOIDANT BEHAVIOUR [None]
  - DECREASED APPETITE [None]
  - MALAISE [None]
  - ACCIDENTAL OVERDOSE [None]
  - AGITATION [None]
